FAERS Safety Report 6645760-4 (Version None)
Quarter: 2010Q1

REPORT INFORMATION
  Report Type: 
  Country: None (occurrence: None)
  Receive Date: 20100323
  Receipt Date: 20100312
  Transmission Date: 20100710
  Serious: No
  Sender: FDA-Public Use
  Company Number: GB-NOVOPROD-304517

PATIENT
  Age: 72 Year
  Sex: Female
  Weight: 120 kg

DRUGS (5)
  1. VICTOZA [Suspect]
     Indication: TYPE 2 DIABETES MELLITUS
     Dosage: 1.2 MG, QD
     Route: 058
     Dates: start: 20091106, end: 20100201
  2. METFORMIN HYDROCHLORIDE [Concomitant]
     Dosage: 1 G, BID
     Route: 048
  3. ATORVASTATIN CALCIUM [Concomitant]
     Dosage: 40 MG, QD
     Route: 048
  4. ACTOS [Concomitant]
     Dosage: 15 MG, QD
     Route: 048
  5. LOSARTAN POTASSIUM [Concomitant]
     Dosage: 50 MG, QD
     Route: 048

REACTIONS (1)
  - RENAL IMPAIRMENT [None]
